FAERS Safety Report 8609267-7 (Version None)
Quarter: 2012Q3

REPORT INFORMATION
  Report Type: 
  Country: None (occurrence: None)
  Receive Date: 20120821
  Receipt Date: 20120813
  Transmission Date: 20120928
  Serious: Yes (Hospitalization)
  Sender: FDA-Public Use
  Company Number: US-PURDUE-USA-2012-0091484

PATIENT
  Sex: Female

DRUGS (5)
  1. ALPRAZOLAM [Suspect]
     Indication: PRODUCT USED FOR UNKNOWN INDICATION
  2. CARDIAC MEDICATION [Suspect]
     Indication: PRODUCT USED FOR UNKNOWN INDICATION
  3. ROXICODONE [Suspect]
     Indication: PRODUCT USED FOR UNKNOWN INDICATION
  4. OXYCONTIN [Suspect]
     Indication: PRODUCT USED FOR UNKNOWN INDICATION
     Dosage: 80 MG, UNK
     Route: 048
  5. LEXAPRO [Suspect]
     Indication: PRODUCT USED FOR UNKNOWN INDICATION

REACTIONS (8)
  - ABDOMINAL PAIN UPPER [None]
  - PAIN [None]
  - HEADACHE [None]
  - INADEQUATE ANALGESIA [None]
  - SOMNOLENCE [None]
  - UNEVALUABLE EVENT [None]
  - CARDIAC DISORDER [None]
  - NAUSEA [None]
